FAERS Safety Report 4332064-8 (Version None)
Quarter: 2004Q1

REPORT INFORMATION
  Report Type: 
  Country: None (occurrence: None)
  Receive Date: 20040330
  Receipt Date: 20040311
  Transmission Date: 20041129
  Serious: Yes (Hospitalization, Disabling)
  Sender: FDA-Public Use
  Company Number: B0326348A

PATIENT
  Age: 8 Year
  Sex: Female

DRUGS (9)
  1. FLOVENT [Suspect]
     Indication: ASTHMA
     Dosage: SEE DOSAGE TEXT/INHALED
  2. FLOVENT [Suspect]
     Indication: ASTHMA
     Dosage: 200 MCG/PER DAY/INHALED
  3. BUDESONIDE [Concomitant]
  4. MONTELUKAST SODIUM [Concomitant]
  5. HYDROCORTISONE [Concomitant]
  6. SODIUM CROMOGLYCATE [Concomitant]
  7. SALMETEROL XINAFOATE [Concomitant]
  8. CITALOPRAM [Concomitant]
  9. BUDESONIDE [Concomitant]

REACTIONS (7)
  - CREATINE URINE INCREASED [None]
  - DEPRESSION [None]
  - FATIGUE [None]
  - MUSCULAR WEAKNESS [None]
  - MYOPATHY STEROID [None]
  - SECONDARY ADRENOCORTICAL INSUFFICIENCY [None]
  - SUICIDAL IDEATION [None]
